FAERS Safety Report 4916208-2 (Version None)
Quarter: 2006Q1

REPORT INFORMATION
  Report Type: 
  Country: None (occurrence: None)
  Receive Date: 20060217
  Receipt Date: 20051004
  Transmission Date: 20060701
  Serious: Yes (Other)
  Sender: FDA-Public Use
  Company Number: US-MERCK-0510USA03360

PATIENT
  Age: 71 Year
  Sex: Female
  Weight: 86 kg

DRUGS (7)
  1. VIOXX [Suspect]
     Indication: ARTHRITIS
     Route: 048
     Dates: start: 20031101, end: 20040708
  2. VIOXX [Suspect]
     Route: 048
     Dates: start: 20040709, end: 20040713
  3. ALPRAZOLAM [Concomitant]
     Indication: ANXIETY
     Route: 065
     Dates: start: 20030301
  4. FOSINOPRIL SODIUM [Concomitant]
     Indication: HYPERTENSION
     Route: 065
  5. METOPROLOL [Concomitant]
     Indication: HYPERTENSION
     Route: 065
     Dates: start: 20031014
  6. ZOCOR [Concomitant]
     Indication: BLOOD CHOLESTEROL INCREASED
     Route: 065
  7. MINIPRESS [Concomitant]
     Route: 065
     Dates: start: 20000419

REACTIONS (6)
  - CEREBROVASCULAR ACCIDENT [None]
  - EPISTAXIS [None]
  - FLUID RETENTION [None]
  - HAND FRACTURE [None]
  - OSTEOARTHRITIS [None]
  - PROTEIN URINE [None]
